FAERS Safety Report 4598484-1 (Version None)
Quarter: 2005Q1

REPORT INFORMATION
  Report Type: 
  Country: None (occurrence: None)
  Receive Date: 20050303
  Receipt Date: 20050303
  Transmission Date: 20050727
  Serious: Yes (Hospitalization)
  Sender: FDA-Public Use
  Company Number: None

PATIENT
  Age: 33 Year
  Sex: Female
  Weight: 97.73 kg

DRUGS (3)
  1. AVELOX [Suspect]
     Indication: BRONCHITIS
     Dosage: ORAL
     Route: 048
     Dates: start: 20050221, end: 20050223
  2. CELEXA [Concomitant]
  3. IMPLANTABLE BIRTH CONTROL DEVICE [Concomitant]

REACTIONS (3)
  - CRYING [None]
  - HALLUCINATION, AUDITORY [None]
  - SELF-INJURIOUS IDEATION [None]
